FAERS Safety Report 20903502 (Version 2)
Quarter: 2022Q4

REPORT INFORMATION
  Report Type: Spontaneous
  Country: US (occurrence: US)
  Receive Date: 20220602
  Receipt Date: 20221022
  Transmission Date: 20230113
  Serious: Yes (Other)
  Sender: FDA-Public Use
  Company Number: US-JNJFOC-20220558118

PATIENT
  Age: 57 Year
  Sex: Female
  Weight: 68 kg

DRUGS (11)
  1. OPSUMIT [Suspect]
     Active Substance: MACITENTAN
     Indication: Product used for unknown indication
     Route: 048
     Dates: end: 20220506
  2. TREPROSTINIL [Suspect]
     Active Substance: TREPROSTINIL
     Indication: Pulmonary arterial hypertension
     Route: 048
     Dates: start: 20180316
  3. TREPROSTINIL [Suspect]
     Active Substance: TREPROSTINIL
     Route: 048
  4. TREPROSTINIL [Suspect]
     Active Substance: TREPROSTINIL
     Route: 048
  5. TREPROSTINIL [Suspect]
     Active Substance: TREPROSTINIL
     Route: 048
  6. TREPROSTINIL [Suspect]
     Active Substance: TREPROSTINIL
     Route: 048
  7. TREPROSTINIL [Suspect]
     Active Substance: TREPROSTINIL
     Route: 048
  8. TREPROSTINIL [Suspect]
     Active Substance: TREPROSTINIL
     Route: 048
  9. TREPROSTINIL [Suspect]
     Active Substance: TREPROSTINIL
     Route: 048
  10. LETAIRIS [Suspect]
     Active Substance: AMBRISENTAN
     Indication: Product used for unknown indication
     Route: 065
  11. ADEMPAS [Concomitant]
     Active Substance: RIOCIGUAT

REACTIONS (5)
  - Oxygen saturation decreased [Unknown]
  - Hypoacusis [Unknown]
  - Generalised oedema [Recovering/Resolving]
  - Hypotension [Unknown]
  - Dehydration [Unknown]
